FAERS Safety Report 12140177 (Version 1)
Quarter: 2016Q1

REPORT INFORMATION
  Report Type: Spontaneous
  Country: US (occurrence: None)
  Receive Date: 20160302
  Receipt Date: 20160302
  Transmission Date: 20160526
  Serious: Yes (Other)
  Sender: FDA-Public Use
  Company Number: None

PATIENT
  Age: 10 Year
  Sex: Male
  Weight: 52.62 kg

DRUGS (1)
  1. PIMOZIDE [Suspect]
     Active Substance: PIMOZIDE
     Indication: TOURETTE^S DISORDER
     Dosage: 1 MG PO QAM QAM
     Route: 048
     Dates: start: 20151202, end: 20160119

REACTIONS (9)
  - Tardive dyskinesia [None]
  - Tic [None]
  - Enuresis [None]
  - Condition aggravated [None]
  - Dry mouth [None]
  - Oropharyngeal pain [None]
  - Cough [None]
  - Dyskinesia [None]
  - Syncope [None]

NARRATIVE: CASE EVENT DATE: 20160119
